FAERS Safety Report 16082444 (Version 2)
Quarter: 2019Q1

REPORT INFORMATION
  Report Type: Spontaneous
  Country: AT (occurrence: AT)
  Receive Date: 20190318
  Receipt Date: 20190326
  Transmission Date: 20190418
  Serious: Yes (Hospitalization)
  Sender: FDA-Public Use
  Company Number: AT-ROCHE-2283800

PATIENT
  Age: 54 Year
  Sex: Female
  Weight: 79 kg

DRUGS (22)
  1. CYCLOPHOSPHAMIDE. [Concomitant]
     Active Substance: CYCLOPHOSPHAMIDE
     Route: 065
     Dates: start: 20180501
  2. DOXORUBICIN [Concomitant]
     Active Substance: DOXORUBICIN
     Route: 065
     Dates: start: 20170830, end: 20171123
  3. DEXAMETHASON [Suspect]
     Active Substance: DEXAMETHASONE
     Indication: DIFFUSE LARGE B-CELL LYMPHOMA
     Route: 065
     Dates: start: 20180117, end: 20180329
  4. CYCLOPHOSPHAMIDE. [Concomitant]
     Active Substance: CYCLOPHOSPHAMIDE
     Route: 065
     Dates: start: 20170830, end: 20171123
  5. MORAPID [Concomitant]
     Indication: PAIN
     Dosage: PRN UP TO 6X DAILY
     Route: 048
     Dates: start: 20170731, end: 20180211
  6. MOLAXOLE [Concomitant]
     Active Substance: POLYETHYLENE GLYCOL 3350\POTASSIUM CHLORIDE\SODIUM BICARBONATE\SODIUM CHLORIDE
     Indication: CONSTIPATION
     Dosage: 1 BAG, 1/0/0
     Route: 048
     Dates: start: 20170731, end: 2018
  7. MABTHERA [Suspect]
     Active Substance: RITUXIMAB
     Indication: DIFFUSE LARGE B-CELL LYMPHOMA
     Route: 042
     Dates: start: 20180118, end: 20180329
  8. ARA-C [Suspect]
     Active Substance: CYTARABINE
     Indication: DIFFUSE LARGE B-CELL LYMPHOMA
     Dosage: HIGH-DOSE ARA-C
     Route: 065
     Dates: start: 20180117, end: 20180329
  9. CARBOPLATIN. [Concomitant]
     Active Substance: CARBOPLATIN
  10. MELPHALAN. [Concomitant]
     Active Substance: MELPHALAN
     Route: 065
     Dates: start: 201804
  11. MEXALEN [Concomitant]
     Active Substance: ACETAMINOPHEN
     Indication: PAIN
     Dosage: PRN UP TO 4X DAILY
     Route: 048
     Dates: start: 20170726, end: 2018
  12. PASSEDAN [Concomitant]
     Indication: RESTLESSNESS
     Route: 048
     Dates: start: 20170820, end: 2018
  13. VENDAL [Concomitant]
     Active Substance: MORPHINE HYDROCHLORIDE
     Indication: PAIN
     Dosage: RET., 1/0/1
     Route: 048
     Dates: start: 20170731, end: 20180511
  14. ETOPOSIDE. [Concomitant]
     Active Substance: ETOPOSIDE
     Route: 065
     Dates: start: 201804
  15. PACLITAXEL. [Concomitant]
     Active Substance: PACLITAXEL
     Route: 065
     Dates: start: 20180501
  16. PANTOLOC [Concomitant]
     Active Substance: PANTOPRAZOLE SODIUM
     Indication: PROPHYLAXIS
     Dosage: 1/0/0
     Route: 048
     Dates: start: 20170820, end: 2018
  17. CISPLATIN. [Suspect]
     Active Substance: CISPLATIN
     Indication: DIFFUSE LARGE B-CELL LYMPHOMA
     Dosage: 24 HOURS PUMP
     Route: 042
     Dates: start: 20180117, end: 20180118
  18. DOXORUBICIN [Concomitant]
     Active Substance: DOXORUBICIN
     Route: 065
     Dates: start: 20180501
  19. CARMUSTINE. [Concomitant]
     Active Substance: CARMUSTINE
     Route: 065
     Dates: start: 201804
  20. OLEOVIT D3 [Concomitant]
     Active Substance: CHOLECALCIFEROL
     Indication: PROPHYLAXIS
     Route: 048
     Dates: start: 20170820, end: 2018
  21. ZOFRAN [Concomitant]
     Active Substance: ONDANSETRON HYDROCHLORIDE
     Indication: NAUSEA
     Dosage: PRN UP TO 2X DAILY
     Route: 048
     Dates: start: 20170920, end: 2018
  22. PASPERTIN (AUSTRIA) [Concomitant]
     Indication: NAUSEA
     Dosage: PRN UP TO 3X DAILY
     Route: 048
     Dates: start: 20170731, end: 2018

REACTIONS (1)
  - Acute kidney injury [Recovered/Resolved]

NARRATIVE: CASE EVENT DATE: 20180125
